FAERS Safety Report 6899335-2 (Version None)
Quarter: 2010Q3

REPORT INFORMATION
  Report Type: 
  Country: None (occurrence: None)
  Receive Date: 20100802
  Receipt Date: 20090404
  Transmission Date: 20110219
  Serious: No
  Sender: FDA-Public Use
  Company Number: US-PFIZER INC-2009166078

PATIENT
  Sex: Female

DRUGS (3)
  1. NORVASC [Suspect]
  2. ACCUPRIL [Suspect]
  3. MONOPRIL [Suspect]

REACTIONS (3)
  - COUGH [None]
  - OEDEMA PERIPHERAL [None]
  - RASH [None]
